FAERS Safety Report 21257202 (Version 5)
Quarter: 2024Q1

REPORT INFORMATION
  Report Type: Other
  Country: CA (occurrence: None)
  Receive Date: 20220826
  Receipt Date: 20240315
  Transmission Date: 20240409
  Serious: Yes (Other)
  Sender: FDA-Public Use
  Company Number: CA-ROCHE-2930206

PATIENT
  Age: 49 Year
  Sex: Male

DRUGS (3)
  1. OCREVUS [Suspect]
     Active Substance: OCRELIZUMAB
     Indication: Relapsing-remitting multiple sclerosis
     Dosage: MORE DOSAGE INFORMATION IS 300 MG AT DAY 0 AND 14, THEN 600 MG EVERY 6 MONTH
     Route: 042
     Dates: start: 20210930
  2. FINASTERIDE [Concomitant]
     Active Substance: FINASTERIDE
     Route: 065
  3. ADVIL [Concomitant]
     Active Substance: IBUPROFEN

REACTIONS (13)
  - Infusion related reaction [Unknown]
  - Insomnia [Recovered/Resolved]
  - Diarrhoea [Recovered/Resolved]
  - COVID-19 [Not Recovered/Not Resolved]
  - Occipital neuralgia [Unknown]
  - Movement disorder [Unknown]
  - Headache [Recovering/Resolving]
  - Infusion related reaction [Recovered/Resolved]
  - Gastrointestinal oedema [Unknown]
  - Epigastric discomfort [Not Recovered/Not Resolved]
  - Irritable bowel syndrome [Not Recovered/Not Resolved]
  - Abdominal distension [Recovering/Resolving]
  - Abdominal pain [Recovering/Resolving]

NARRATIVE: CASE EVENT DATE: 20211001
